FAERS Safety Report 19350202 (Version 1)
Quarter: 2021Q2

REPORT INFORMATION
  Report Type: Spontaneous
  Country: US (occurrence: US)
  Receive Date: 20210528
  Receipt Date: 20210528
  Transmission Date: 20210717
  Serious: Yes (Life-Threatening, Disabling, Other)
  Sender: FDA-Public Use
  Company Number: None

PATIENT
  Age: 43 Year
  Sex: Male
  Weight: 81.65 kg

DRUGS (1)
  1. GADOLINIUM CONTRAST [Suspect]
     Active Substance: GADOLINIUM

REACTIONS (4)
  - Gait disturbance [None]
  - Feeling abnormal [None]
  - Vision blurred [None]
  - Small fibre neuropathy [None]

NARRATIVE: CASE EVENT DATE: 20180118
